FAERS Safety Report 14961519 (Version 5)
Quarter: 2018Q3

REPORT INFORMATION
  Report Type: Report from Study
  Country: DE (occurrence: DE)
  Receive Date: 20180601
  Receipt Date: 20180903
  Transmission Date: 20181010
  Serious: Yes (Life-Threatening, Hospitalization, Other)
  Sender: FDA-Public Use
  Company Number: PHHY2010DE41900

PATIENT
  Age: 67 Year
  Sex: Female
  Weight: 56 kg

DRUGS (16)
  1. PREDNIHEXAL [Concomitant]
     Active Substance: PREDNISOLONE ACETATE
     Dosage: 2.5 MG, UNK
     Route: 065
     Dates: start: 20100326, end: 20100409
  2. TASIGNA [Suspect]
     Active Substance: NILOTINIB
     Dosage: 800 MG, QD
     Route: 048
     Dates: start: 20090825
  3. TASIGNA [Suspect]
     Active Substance: NILOTINIB
     Dosage: 800 MG, QD
     Route: 048
     Dates: start: 20091211
  4. TASIGNA [Suspect]
     Active Substance: NILOTINIB
     Dosage: 800 MG, QD
     Route: 048
     Dates: start: 20091007
  5. TASIGNA [Suspect]
     Active Substance: NILOTINIB
     Dosage: 800 MG, QD
     Route: 048
     Dates: start: 20100624
  6. TASIGNA [Suspect]
     Active Substance: NILOTINIB
     Dosage: 600 MG, QD
     Route: 048
     Dates: start: 20101102, end: 20101122
  7. TASIGNA [Suspect]
     Active Substance: NILOTINIB
     Dosage: 800 MG, QD
     Route: 048
     Dates: end: 20101227
  8. PREDNIHEXAL [Concomitant]
     Active Substance: PREDNISOLONE ACETATE
     Dosage: 15 MG, UNK
     Route: 065
     Dates: start: 20100128, end: 20100209
  9. PREDNIHEXAL [Concomitant]
     Active Substance: PREDNISOLONE ACETATE
     Dosage: 7.5 MG, UNK
     Route: 065
     Dates: start: 20100223, end: 20100304
  10. PREDNIHEXAL [Concomitant]
     Active Substance: PREDNISOLONE ACETATE
     Dosage: 5 MG, UNK
     Route: 065
     Dates: start: 20100304, end: 20100326
  11. TASIGNA [Suspect]
     Active Substance: NILOTINIB
     Dosage: 400 MG, QD
     Route: 048
     Dates: start: 20091230, end: 20100223
  12. TASIGNA [Suspect]
     Active Substance: NILOTINIB
     Indication: CHRONIC MYELOID LEUKAEMIA
     Dosage: 800 MG, QD
     Route: 048
     Dates: start: 20090625
  13. TASIGNA [Suspect]
     Active Substance: NILOTINIB
     Dosage: 400 MG, QD
     Route: 048
     Dates: start: 20100830, end: 20101102
  14. PREDNIHEXAL [Concomitant]
     Active Substance: PREDNISOLONE ACETATE
     Indication: PRODUCT USED FOR UNKNOWN INDICATION
     Dosage: 20 MG, UNK
     Route: 065
     Dates: start: 20100119, end: 20100128
  15. PREDNIHEXAL [Concomitant]
     Active Substance: PREDNISOLONE ACETATE
     Dosage: 10 MG, UNK
     Route: 065
     Dates: start: 20100209, end: 20100223
  16. TASIGNA [Suspect]
     Active Substance: NILOTINIB
     Dosage: 800 MG, QD
     Route: 048
     Dates: start: 20090730

REACTIONS (21)
  - Pruritus [Unknown]
  - Skin plaque [Unknown]
  - Thrombocytopenia [Recovered/Resolved]
  - Nervousness [Unknown]
  - Transaminases increased [Unknown]
  - Oedema peripheral [Unknown]
  - Fatigue [Recovered/Resolved]
  - Erythema [Unknown]
  - Pyrexia [Recovered/Resolved]
  - Pain in extremity [Recovered/Resolved]
  - Pruritus generalised [Recovered/Resolved]
  - Pain of skin [Recovered/Resolved]
  - Sleep disorder [Unknown]
  - Nasopharyngitis [Unknown]
  - Transaminases increased [Recovered/Resolved]
  - Asthenia [Unknown]
  - Blood bilirubin increased [Unknown]
  - Dizziness [Unknown]
  - Lacrimal disorder [Recovered/Resolved]
  - Dry skin [Unknown]
  - Therapy non-responder [Unknown]

NARRATIVE: CASE EVENT DATE: 20090701
